FAERS Safety Report 6428201-1 (Version None)
Quarter: 2009Q4

REPORT INFORMATION
  Report Type: 
  Country: None (occurrence: None)
  Receive Date: 20091030
  Receipt Date: 20091022
  Transmission Date: 20100525
  Serious: Yes (Other)
  Sender: FDA-Public Use
  Company Number: GXKR2007GB10583

PATIENT
  Age: 56 Year
  Sex: Female

DRUGS (8)
  1. CITALOPRAM (NGX) (CITALOPRAM) UNKNOWN [Suspect]
     Indication: DEPRESSED MOOD
     Dosage: 20 MG, QD, ORAL
     Route: 048
     Dates: start: 20070727
  2. GABAPENTIN [Suspect]
     Indication: NEURALGIA
     Dosage: 2700 MG, TID
     Dates: start: 20070727, end: 20071104
  3. LYRICA [Suspect]
     Indication: NEURALGIA
     Dosage: 375 MG, QD
     Dates: start: 20071104
  4. BISCADOYL (BISACODYL) [Concomitant]
  5. COD LIVER OIL FORTIFIED TAB [Concomitant]
  6. GLUCOSAMINE (GLUCOSAMINE) [Concomitant]
  7. LIDOCAINE [Concomitant]
  8. VITAMINS NOS (VITAMINS NOS) [Concomitant]

REACTIONS (31)
  - ACTIVITIES OF DAILY LIVING IMPAIRED [None]
  - AMNESIA [None]
  - ANAL SPHINCTER ATONY [None]
  - ANORGASMIA [None]
  - ARTHRALGIA [None]
  - ATONIC URINARY BLADDER [None]
  - BODY DYSMORPHIC DISORDER [None]
  - BRADYCARDIA [None]
  - COGNITIVE DISORDER [None]
  - CONSTIPATION [None]
  - DIARRHOEA [None]
  - DISTURBANCE IN ATTENTION [None]
  - DRUG INTERACTION [None]
  - DRY EYE [None]
  - FLATULENCE [None]
  - GINGIVAL SWELLING [None]
  - HEADACHE [None]
  - HYPOTENSION [None]
  - INCONTINENCE [None]
  - JOINT SWELLING [None]
  - LIBIDO DECREASED [None]
  - MUCOUS MEMBRANE DISORDER [None]
  - MYALGIA [None]
  - OEDEMA [None]
  - PAIN [None]
  - POLLAKIURIA [None]
  - QUALITY OF LIFE DECREASED [None]
  - TOOTH DISORDER [None]
  - UNEVALUABLE EVENT [None]
  - URINARY RETENTION [None]
  - WEIGHT INCREASED [None]
